FAERS Safety Report 22223007 (Version 1)
Quarter: 2023Q2

REPORT INFORMATION
  Report Type: Spontaneous
  Country: US (occurrence: None)
  Receive Date: 20230417
  Receipt Date: 20230417
  Transmission Date: 20230721
  Serious: Yes (Other)
  Sender: FDA-Public Use
  Company Number: None

PATIENT
  Sex: 0

DRUGS (1)
  1. DEXTROAMPHETAMINE [Suspect]
     Active Substance: DEXTROAMPHETAMINE
     Route: 048

REACTIONS (6)
  - Product substitution issue [None]
  - Therapeutic product effect decreased [None]
  - Product supply issue [None]
  - Job dissatisfaction [None]
  - Mental impairment [None]
  - Social problem [None]

NARRATIVE: CASE EVENT DATE: 20230315
